FAERS Safety Report 20590788 (Version 1)
Quarter: 2022Q1

REPORT INFORMATION
  Report Type: Spontaneous
  Country: US (occurrence: None)
  Receive Date: 20220314
  Receipt Date: 20220314
  Transmission Date: 20220423
  Serious: No
  Sender: FDA-Public Use
  Company Number: None

PATIENT
  Age: 87 Year
  Sex: Male
  Weight: 64.35 kg

DRUGS (8)
  1. PRAMIPEXOLE DIHYDROCHLORIDE EXTENDED-RELEASE [Suspect]
     Active Substance: PRAMIPEXOLE DIHYDROCHLORIDE
     Indication: Restless legs syndrome
     Dosage: OTHER QUANTITY : 1 TABLET(S);?FREQUENCY : TWICE A DAY;?
     Route: 048
     Dates: start: 20220302, end: 20220310
  2. LOSARTAN [Concomitant]
     Active Substance: LOSARTAN
  3. LEVOTHYROXINE [Concomitant]
     Active Substance: LEVOTHYROXINE
  4. MIRAPEX ER TABE [Concomitant]
  5. OCUVITE [Concomitant]
     Active Substance: VITAMINS
  6. LACTOBACILLUS ACIDOPHILUS [Concomitant]
     Active Substance: LACTOBACILLUS ACIDOPHILUS
  7. MAGNESIUM [Concomitant]
     Active Substance: MAGNESIUM
  8. VITAMIN C [Concomitant]
     Active Substance: ASCORBIC ACID

REACTIONS (8)
  - Product substitution issue [None]
  - Swelling face [None]
  - Erythema [None]
  - Pruritus [None]
  - Drug ineffective [None]
  - Restless legs syndrome [None]
  - Pruritus [None]
  - Insurance issue [None]

NARRATIVE: CASE EVENT DATE: 20220302
